FAERS Safety Report 5729074-2 (Version None)
Quarter: 2008Q2

REPORT INFORMATION
  Report Type: 
  Country: None (occurrence: None)
  Receive Date: 20080506
  Receipt Date: 20080424
  Transmission Date: 20081010
  Serious: Yes (Other)
  Sender: FDA-Public Use
  Company Number: US-PFIZER INC-2008037131

PATIENT
  Sex: Female

DRUGS (1)
  1. LYRICA [Suspect]
     Indication: POST HERPETIC NEURALGIA
     Dates: start: 20080325, end: 20080402

REACTIONS (10)
  - BRONCHITIS [None]
  - CONJUNCTIVITIS INFECTIVE [None]
  - DYSPNOEA [None]
  - EAR DISORDER [None]
  - EYE DISCHARGE [None]
  - IMMUNE SYSTEM DISORDER [None]
  - SINUS DISORDER [None]
  - SWOLLEN TONGUE [None]
  - VISION BLURRED [None]
  - WEIGHT INCREASED [None]
